FAERS Safety Report 9832742 (Version 1)
Quarter: 2014Q1

REPORT INFORMATION
  Report Type: Spontaneous
  Country: FR (occurrence: FR)
  Receive Date: 20140121
  Receipt Date: 20140121
  Transmission Date: 20141002
  Serious: Yes (Hospitalization)
  Sender: FDA-Public Use
  Company Number: FR-CELGENEUS-056-20785-14011582

PATIENT
  Age: 24 Year
  Sex: Male

DRUGS (3)
  1. THALIDOMIDE [Suspect]
     Indication: APHTHOUS STOMATITIS
     Route: 048
     Dates: start: 2011
  2. THALIDOMIDE [Suspect]
     Route: 048
     Dates: start: 201306
  3. COLCHICINE [Suspect]
     Indication: BEHCET^S SYNDROME
     Route: 048

REACTIONS (1)
  - Schizophrenia, paranoid type [Not Recovered/Not Resolved]
